FAERS Safety Report 5002145-4 (Version None)
Quarter: 2006Q2

REPORT INFORMATION
  Report Type: 
  Country: None (occurrence: None)
  Receive Date: 20060515
  Receipt Date: 20060502
  Transmission Date: 20061013
  Serious: Yes (Hospitalization)
  Sender: FDA-Public Use
  Company Number: FR-AVENTIS-200611661FR

PATIENT
  Age: 81 Year
  Sex: Female

DRUGS (16)
  1. CALSYN [Suspect]
     Indication: OSTEOPOROSIS
     Dates: start: 20060218, end: 20060303
  2. STRONTIUM RANELATE [Suspect]
     Indication: OSTEOPOROSIS
     Route: 048
     Dates: start: 20060218, end: 20060313
  3. DUPHALAC [Suspect]
     Route: 048
     Dates: start: 20060302
  4. FELDENE [Suspect]
     Indication: RHEUMATOID ARTHRITIS
     Route: 030
     Dates: start: 20060215, end: 20060215
  5. EVISTA [Suspect]
     Indication: OSTEOPOROSIS
     Route: 048
     Dates: start: 20031215, end: 20060217
  6. SKENAN [Suspect]
     Indication: RHEUMATOID ARTHRITIS
     Route: 048
     Dates: start: 20060224
  7. CELESTENE [Concomitant]
     Route: 048
  8. SPECIAFOLDINE [Concomitant]
  9. ESBERIVEN FORT [Concomitant]
  10. LASILIX [Concomitant]
  11. FENOFIBRATE [Concomitant]
  12. CARDENSIEL [Concomitant]
  13. LORAZEPAM [Concomitant]
  14. CACIT [Concomitant]
  15. CORTANCYL [Concomitant]
  16. NOVATREX ^LEDERLE^ [Concomitant]

REACTIONS (2)
  - DEEP VEIN THROMBOSIS [None]
  - PULMONARY EMBOLISM [None]
